FAERS Safety Report 6896580-7 (Version None)
Quarter: 2010Q3

REPORT INFORMATION
  Report Type: 
  Country: None (occurrence: None)
  Receive Date: 20100729
  Receipt Date: 20100720
  Transmission Date: 20110219
  Serious: Yes (Other)
  Sender: FDA-Public Use
  Company Number: 2010US002859

PATIENT
  Age: 92 Year
  Sex: Female

DRUGS (4)
  1. VESICARE [Suspect]
     Indication: INCONTINENCE
     Dosage: 5 MG, UID/QD, ORAL
     Route: 048
     Dates: start: 20100315, end: 20100425
  2. LISINOPRIL [Concomitant]
  3. LIPITOR [Concomitant]
  4. ACTONEL [Concomitant]

REACTIONS (2)
  - AMNESIA [None]
  - ANXIETY [None]
